FAERS Safety Report 5962132-6 (Version None)
Quarter: 2008Q4

REPORT INFORMATION
  Report Type: 
  Country: None (occurrence: None)
  Receive Date: 20081121
  Receipt Date: 20081113
  Transmission Date: 20090506
  Serious: Yes (Other)
  Sender: FDA-Public Use
  Company Number: US-JNJCH-2008054850

PATIENT
  Age: 26 Year
  Sex: Male
  Weight: 63.5 kg

DRUGS (2)
  1. BENADRYL [Suspect]
     Indication: EUPHORIC MOOD
     Dosage: TEXT:UNSPECIFIED DAILY
     Route: 048
  2. METHADONE HCL [Suspect]
     Indication: EUPHORIC MOOD
     Dosage: TEXT:UNSPECIFIED
     Route: 065

REACTIONS (1)
  - DRUG ABUSE [None]
